FAERS Safety Report 6718656-7 (Version None)
Quarter: 2010Q2

REPORT INFORMATION
  Report Type: 
  Country: None (occurrence: None)
  Receive Date: 20100510
  Receipt Date: 20100503
  Transmission Date: 20101027
  Serious: Yes (Death)
  Sender: FDA-Public Use
  Company Number: BW-GILEAD-2010-0027912

PATIENT
  Age: 42 Year
  Sex: Male
  Weight: 49 kg

DRUGS (2)
  1. TRUVADA [Suspect]
     Indication: HIV INFECTION
     Route: 048
     Dates: start: 20090505, end: 20100315
  2. EFAVIRENZ [Suspect]
     Indication: HIV INFECTION
     Route: 048
     Dates: start: 20090505, end: 20100315

REACTIONS (1)
  - COMPLETED SUICIDE [None]
